FAERS Safety Report 4377056-8 (Version None)
Quarter: 2004Q2

REPORT INFORMATION
  Report Type: 
  Country: None (occurrence: None)
  Receive Date: 20040614
  Receipt Date: 20040427
  Transmission Date: 20050107
  Serious: Yes (Life-Threatening)
  Sender: FDA-Public Use
  Company Number: FR-ROCHE-365528

PATIENT
  Age: 81 Year
  Sex: Female
  Weight: 54 kg

DRUGS (1)
  1. ROCEPHIN [Suspect]
     Dosage: ONE UNIQUE INJECTION TAKEN.
     Route: 030

REACTIONS (2)
  - ANGIONEUROTIC OEDEMA [None]
  - SHOCK [None]
